FAERS Safety Report 13495079 (Version 1)
Quarter: 2017Q2

REPORT INFORMATION
  Report Type: Spontaneous
  Country: US (occurrence: US)
  Receive Date: 20170428
  Receipt Date: 20170428
  Transmission Date: 20170830
  Serious: Yes (Life-Threatening)
  Sender: FDA-Public Use
  Company Number: US-KYOWAKIRIN-2017BKK001149

PATIENT

DRUGS (3)
  1. SANCUSO [Suspect]
     Active Substance: GRANISETRON
     Indication: PROPHYLAXIS OF NAUSEA AND VOMITING
     Dosage: 1 DF, UNK
     Route: 061
     Dates: start: 20170407, end: 20170415
  2. ALIMTA [Suspect]
     Active Substance: PEMETREXED DISODIUM
     Indication: SMALL CELL LUNG CANCER
     Dosage: UNK
     Route: 042
     Dates: end: 20170407
  3. CISPLATIN. [Suspect]
     Active Substance: CISPLATIN
     Indication: SMALL CELL LUNG CANCER
     Dosage: UNK
     Route: 042
     Dates: end: 20170407

REACTIONS (11)
  - Dehydration [Unknown]
  - Headache [Unknown]
  - Fatigue [Unknown]
  - Nausea [Recovering/Resolving]
  - Inappropriate schedule of drug administration [Recovered/Resolved]
  - Syncope [Unknown]
  - Resuscitation [Recovered/Resolved]
  - Renal disorder [Unknown]
  - Dizziness [Unknown]
  - Cardio-respiratory arrest [None]
  - Chest pain [Unknown]

NARRATIVE: CASE EVENT DATE: 201704
